FAERS Safety Report 8773612 (Version 1)
Quarter: 2012Q4

REPORT INFORMATION
  Report Type: Report from Study
  Country: CA (occurrence: CA)
  Receive Date: 20120907
  Receipt Date: 20120907
  Transmission Date: 20130627
  Serious: Yes (Hospitalization, Other)
  Sender: FDA-Public Use
  Company Number: CA-ROCHE-1118655

PATIENT
  Age: 75 Year

DRUGS (1)
  1. XELODA [Suspect]
     Indication: COLORECTAL CANCER
     Route: 065
     Dates: start: 20070620, end: 20120620

REACTIONS (4)
  - Hip fracture [Unknown]
  - Gastritis [Unknown]
  - Proctitis [Unknown]
  - Gastrointestinal haemorrhage [Unknown]
